FAERS Safety Report 5498425-9 (Version None)
Quarter: 2007Q4

REPORT INFORMATION
  Report Type: 
  Country: None (occurrence: None)
  Receive Date: 20071024
  Receipt Date: 20070604
  Transmission Date: 20080405
  Serious: Yes (Other)
  Sender: FDA-Public Use
  Company Number: DSA_30004_2007

PATIENT
  Sex: Male

DRUGS (4)
  1. ATIVAN [Suspect]
     Dosage: (1.5 MG TID ORAL)
     Route: 048
     Dates: start: 19870101
  2. RESTORIL [Concomitant]
  3. FLOMAX /00889901/ [Concomitant]
  4. PRILOSEC /00661201/ [Concomitant]

REACTIONS (6)
  - CORNEAL TRANSPLANT [None]
  - DRUG DEPENDENCE [None]
  - FEELING ABNORMAL [None]
  - GLAUCOMA SURGERY [None]
  - SURGICAL PROCEDURE REPEATED [None]
  - SYNCOPE [None]
